FAERS Safety Report 24001766 (Version 1)
Quarter: 2024Q2

REPORT INFORMATION
  Report Type: Report from Study
  Country: CO (occurrence: CO)
  Receive Date: 20240622
  Receipt Date: 20240622
  Transmission Date: 20240717
  Serious: Yes (Life-Threatening, Other)
  Sender: FDA-Public Use
  Company Number: CO-ABBVIE-5592217

PATIENT
  Sex: Female
  Weight: 55 kg

DRUGS (6)
  1. SKYRIZI [Suspect]
     Active Substance: RISANKIZUMAB-RZAA
     Indication: Psoriasis
     Dosage: FORM STRENGTH150 MG
     Route: 058
     Dates: start: 20220723, end: 20230925
  2. SKYRIZI [Suspect]
     Active Substance: RISANKIZUMAB-RZAA
     Dosage: FORM STRENGTH150 MG
     Route: 058
     Dates: end: 20240306
  3. BISOPROLOL [Suspect]
     Active Substance: BISOPROLOL\BISOPROLOL FUMARATE
     Indication: Arrhythmia
     Dosage: UNKNOWN
     Route: 048
     Dates: start: 20240601
  4. OXYGEN [Concomitant]
     Active Substance: OXYGEN
     Indication: Product used for unknown indication
     Route: 065
     Dates: start: 20240603
  5. CALCIUM [Concomitant]
     Active Substance: CALCIUM
     Indication: Product used for unknown indication
     Route: 048
  6. LEVOTHYROXINE [Concomitant]
     Active Substance: LEVOTHYROXINE\LEVOTHYROXINE SODIUM
     Indication: Hypothyroidism
     Dosage: MONDAY -SATURDAY 1 DOSE , SUNDAY 2 DOSES
     Route: 048
     Dates: start: 2023

REACTIONS (12)
  - Respiratory arrest [Unknown]
  - Headache [Recovering/Resolving]
  - Unevaluable event [Not Recovered/Not Resolved]
  - Hypothyroidism [Recovering/Resolving]
  - Psoriasis [Not Recovered/Not Resolved]
  - Unresponsive to stimuli [Unknown]
  - Platelet count decreased [Unknown]
  - Arrhythmia [Unknown]
  - Condition aggravated [Unknown]
  - Weight decreased [Unknown]
  - Chest pain [Unknown]
  - Haemoglobin abnormal [Unknown]

NARRATIVE: CASE EVENT DATE: 20230101
